FAERS Safety Report 8216925-5 (Version None)
Quarter: 2012Q1

REPORT INFORMATION
  Report Type: 
  Country: None (occurrence: None)
  Receive Date: 20120318
  Receipt Date: 20120315
  Transmission Date: 20120608
  Serious: Yes (Life-Threatening)
  Sender: FDA-Public Use
  Company Number: AU-ROCHE-1049442

PATIENT
  Age: 22 Year
  Sex: Female

DRUGS (6)
  1. BACTRIM DS [Suspect]
     Indication: PRODUCT USED FOR UNKNOWN INDICATION
     Dates: start: 20111101, end: 20111120
  2. ISOTRETINOIN [Suspect]
     Indication: PRODUCT USED FOR UNKNOWN INDICATION
     Route: 048
     Dates: start: 20111101, end: 20111120
  3. CEPHALEXIN [Concomitant]
  4. OXYCODONE HCL [Concomitant]
  5. DIANE-35 [Concomitant]
  6. METOCLOPRAMIDE HCL [Concomitant]

REACTIONS (2)
  - NEUTROPENIA [None]
  - SINUSITIS FUNGAL [None]
